FAERS Safety Report 18775810 (Version 1)
Quarter: 2021Q1

REPORT INFORMATION
  Report Type: Spontaneous
  Country: CA (occurrence: CA)
  Receive Date: 20210122
  Receipt Date: 20210122
  Transmission Date: 20210419
  Serious: Yes (Death, Hospitalization, Other)
  Sender: FDA-Public Use
  Company Number: NVSC2021CA011783

PATIENT
  Age: 48 Year
  Sex: Male

DRUGS (8)
  1. COVERSYL [Concomitant]
     Active Substance: PERINDOPRIL
     Indication: PRODUCT USED FOR UNKNOWN INDICATION
     Dosage: 4 MG
     Route: 065
  2. AFINITOR [Suspect]
     Active Substance: EVEROLIMUS
     Indication: PANCREATIC NEUROENDOCRINE TUMOUR METASTATIC
     Dosage: 10 MG, QID
     Route: 048
  3. SANDOSTATIN [Suspect]
     Active Substance: OCTREOTIDE ACETATE
  4. FENTANYL CITRATE. [Suspect]
     Active Substance: FENTANYL CITRATE
     Indication: PRODUCT USED FOR UNKNOWN INDICATION
     Dosage: UNK (LIQUID EPIDURAL)
     Route: 065
  5. SANDOSTATIN [Suspect]
     Active Substance: OCTREOTIDE ACETATE
     Indication: PANCREATIC NEUROENDOCRINE TUMOUR METASTATIC
     Dosage: 40 MG
     Route: 058
  6. DIABINESE [Concomitant]
     Active Substance: CHLORPROPAMIDE
     Indication: PRODUCT USED FOR UNKNOWN INDICATION
     Dosage: 250 MG, QID
     Route: 065
  7. TYLENOL [Concomitant]
     Active Substance: ACETAMINOPHEN
     Indication: PRODUCT USED FOR UNKNOWN INDICATION
     Dosage: UNK
     Route: 065
  8. SANDOSTATIN [Suspect]
     Active Substance: OCTREOTIDE ACETATE

REACTIONS (22)
  - Device related infection [Fatal]
  - Blood pressure increased [Fatal]
  - Influenza [Fatal]
  - Blood calcium decreased [Fatal]
  - Bile output abnormal [Fatal]
  - Oral discomfort [Fatal]
  - Fatigue [Fatal]
  - Decreased appetite [Fatal]
  - Cough [Fatal]
  - Haemoglobin decreased [Fatal]
  - Melaena [Fatal]
  - Pain [Fatal]
  - Sciatica [Fatal]
  - Sputum discoloured [Fatal]
  - Rhinorrhoea [Fatal]
  - Injection site pain [Fatal]
  - Biliary obstruction [Fatal]
  - Pyrexia [Fatal]
  - Abdominal pain [Fatal]
  - Overdose [Fatal]
  - Malaise [Fatal]
  - Tongue discomfort [Fatal]
